FAERS Safety Report 9405290 (Version 2)
Quarter: 2013Q4

REPORT INFORMATION
  Report Type: Spontaneous
  Country: IT (occurrence: IT)
  Receive Date: 20130717
  Receipt Date: 20131114
  Transmission Date: 20140711
  Serious: Yes (Other)
  Sender: FDA-Public Use
  Company Number: IT-TEVA-418638ISR

PATIENT
  Age: 63 Year
  Sex: Male
  Weight: 80 kg

DRUGS (1)
  1. CISPLATIN [Suspect]
     Indication: BLADDER CANCER
     Dosage: 100 MG CYCLICAL
     Route: 042
     Dates: start: 20130105

REACTIONS (4)
  - Pyrexia [Recovered/Resolved]
  - Anaemia [Recovered/Resolved]
  - Diarrhoea [Recovered/Resolved]
  - Blood albumin decreased [Recovered/Resolved]
